FAERS Safety Report 10742774 (Version 1)
Quarter: 2015Q1

REPORT INFORMATION
  Report Type: Spontaneous
  Country: US (occurrence: US)
  Receive Date: 20150127
  Receipt Date: 20150127
  Transmission Date: 20150721
  Serious: No
  Sender: FDA-Public Use
  Company Number: US-009507513-1501USA008554

PATIENT
  Sex: Male

DRUGS (4)
  1. LEXIVA [Concomitant]
     Active Substance: FOSAMPRENAVIR CALCIUM
  2. VIREAD [Concomitant]
     Active Substance: TENOFOVIR DISOPROXIL FUMARATE
  3. FENOGLIDE [Concomitant]
     Active Substance: FENOFIBRATE
  4. ISENTRESS [Suspect]
     Active Substance: RALTEGRAVIR POTASSIUM
     Indication: HIV INFECTION
     Dosage: 2 ISSENTRESS 400 MG/ TWICE DAILY
     Route: 048
     Dates: start: 2010

REACTIONS (2)
  - Cognitive disorder [Unknown]
  - Motor dysfunction [Unknown]
